FAERS Safety Report 7214394-5 (Version None)
Quarter: 2011Q1

REPORT INFORMATION
  Report Type: 
  Country: None (occurrence: None)
  Receive Date: 20110107
  Receipt Date: 20101230
  Transmission Date: 20110831
  Serious: Yes (Hospitalization, Other)
  Sender: FDA-Public Use
  Company Number: PHHY2009IE53555

PATIENT
  Sex: Male

DRUGS (3)
  1. SERDOLECT [Concomitant]
  2. CLOZARIL [Suspect]
     Dosage: 50 MG, BID
  3. CLOZARIL [Suspect]
     Indication: SCHIZOPHRENIA
     Dosage: UNK
     Dates: start: 20091119

REACTIONS (3)
  - GRAND MAL CONVULSION [None]
  - CARDIAC ENZYMES INCREASED [None]
  - CHEST PAIN [None]
